FAERS Safety Report 13433120 (Version 2)
Quarter: 2017Q2

REPORT INFORMATION
  Report Type: Report from Study
  Country: US (occurrence: US)
  Receive Date: 20170412
  Receipt Date: 20170419
  Transmission Date: 20170830
  Serious: No
  Sender: FDA-Public Use
  Company Number: US-TAKEDA-2017TUS007685

PATIENT
  Age: 51 Year
  Sex: Female
  Weight: 95 kg

DRUGS (57)
  1. ASPIRIN                            /00002701/ [Concomitant]
     Active Substance: ASPIRIN
     Indication: OSTEOARTHRITIS
  2. MONTELUKAST [Concomitant]
     Active Substance: MONTELUKAST SODIUM
     Indication: ASTHMA
  3. ALBUTEROL                          /00139501/ [Concomitant]
     Active Substance: ALBUTEROL
     Indication: CHRONIC OBSTRUCTIVE PULMONARY DISEASE
  4. HYDROCHLOROTHIAZIDE. [Concomitant]
     Active Substance: HYDROCHLOROTHIAZIDE
     Indication: HYPERTENSION
  5. VESICARE [Concomitant]
     Active Substance: SOLIFENACIN SUCCINATE
     Indication: HYPERTONIC BLADDER
  6. DULERA [Concomitant]
     Active Substance: FORMOTEROL FUMARATE DIHYDRATE\MOMETASONE FUROATE
     Indication: ASTHMA
     Dosage: UNK, BID
     Dates: start: 20141215
  7. AMLODIPINE [Concomitant]
     Active Substance: AMLODIPINE BESYLATE
     Indication: HYPERTENSION
     Dosage: 5 MG, QD
     Route: 048
     Dates: start: 20151204
  8. AZITHROMYCIN ANHYDROUS. [Concomitant]
     Active Substance: AZITHROMYCIN ANHYDROUS
     Indication: GENITOURINARY TRACT INFECTION
     Dosage: 1 GTT, QID
     Dates: start: 20160701
  9. AZITHROMYCIN ANHYDROUS. [Concomitant]
     Active Substance: AZITHROMYCIN ANHYDROUS
     Indication: CONJUNCTIVITIS BACTERIAL
  10. ESTRADIOL. [Concomitant]
     Active Substance: ESTRADIOL
     Indication: MENOPAUSE
     Dosage: 1 G, QD
     Route: 061
     Dates: start: 20170318
  11. CETIRIZINE [Concomitant]
     Active Substance: CETIRIZINE HYDROCHLORIDE
     Indication: RHINITIS ALLERGIC
     Dosage: 10 MG, QD
     Route: 048
     Dates: start: 19990415
  12. ACETAMINOPHEN AND CODEINE [Concomitant]
     Active Substance: ACETAMINOPHEN\CODEINE PHOSPHATE
     Indication: NEURALGIA
  13. AMLODIPINE [Concomitant]
     Active Substance: AMLODIPINE BESYLATE
     Indication: ANGINA PECTORIS
  14. ALPRAZOLAM. [Concomitant]
     Active Substance: ALPRAZOLAM
     Indication: ANXIETY
  15. CETIRIZINE [Concomitant]
     Active Substance: CETIRIZINE HYDROCHLORIDE
     Indication: HYPERSENSITIVITY
  16. PRAZOSIN. [Concomitant]
     Active Substance: PRAZOSIN
     Indication: HYPERTENSION
  17. VORTIOXETINE [Suspect]
     Active Substance: VORTIOXETINE
     Indication: GENERALISED ANXIETY DISORDER
  18. CETIRIZINE [Concomitant]
     Active Substance: CETIRIZINE HYDROCHLORIDE
     Indication: ASTHMA
  19. ACETAMINOPHEN AND CODEINE [Concomitant]
     Active Substance: ACETAMINOPHEN\CODEINE PHOSPHATE
     Indication: FIBROMYALGIA
  20. VESICARE [Concomitant]
     Active Substance: SOLIFENACIN SUCCINATE
     Indication: PATIENT-DEVICE INCOMPATIBILITY
  21. VESICARE [Concomitant]
     Active Substance: SOLIFENACIN SUCCINATE
     Indication: URINARY INCONTINENCE
  22. PRAZOSIN. [Concomitant]
     Active Substance: PRAZOSIN
     Indication: BLADDER DISORDER
  23. VALACYCLOVIR [Concomitant]
     Active Substance: VALACYCLOVIR HYDROCHLORIDE
     Indication: HERPES ZOSTER
     Dosage: 500 MG, QD
     Route: 048
     Dates: start: 20130115
  24. VALACYCLOVIR [Concomitant]
     Active Substance: VALACYCLOVIR HYDROCHLORIDE
     Indication: GENITAL HERPES
  25. ESTRADIOL. [Concomitant]
     Active Substance: ESTRADIOL
     Indication: VULVOVAGINAL DRYNESS
  26. IMIPRAMINE [Concomitant]
     Active Substance: IMIPRAMINE
     Indication: MICTURITION URGENCY
  27. MONTELUKAST [Concomitant]
     Active Substance: MONTELUKAST SODIUM
     Indication: SEASONAL ALLERGY
  28. CETIRIZINE [Concomitant]
     Active Substance: CETIRIZINE HYDROCHLORIDE
     Indication: SEASONAL ALLERGY
  29. ACETAMINOPHEN AND CODEINE [Concomitant]
     Active Substance: ACETAMINOPHEN\CODEINE PHOSPHATE
     Indication: PAIN
     Dosage: UNK, QD
     Route: 048
     Dates: start: 20021115
  30. ESTRADIOL. [Concomitant]
     Active Substance: ESTRADIOL
     Indication: VULVOVAGINAL PAIN
  31. ASPIRIN                            /00002701/ [Concomitant]
     Active Substance: ASPIRIN
     Indication: ANGINA PECTORIS
     Dosage: 81 MG, UNK
     Dates: start: 19750701
  32. HYDROCHLOROTHIAZIDE. [Concomitant]
     Active Substance: HYDROCHLOROTHIAZIDE
     Indication: HYPERTENSION
     Dosage: 12.5 MG, UNK
     Dates: start: 19990515
  33. HYDROCHLOROTHIAZIDE. [Concomitant]
     Active Substance: HYDROCHLOROTHIAZIDE
     Indication: FLUID RETENTION
  34. VESICARE [Concomitant]
     Active Substance: SOLIFENACIN SUCCINATE
     Indication: POLLAKIURIA
  35. VESICARE [Concomitant]
     Active Substance: SOLIFENACIN SUCCINATE
     Indication: POST PROCEDURAL COMPLICATION
  36. PRAZOSIN. [Concomitant]
     Active Substance: PRAZOSIN
     Indication: POST-TRAUMATIC STRESS DISORDER
     Dosage: 5 MG, BID
     Route: 048
     Dates: start: 20121214
  37. VALACYCLOVIR [Concomitant]
     Active Substance: VALACYCLOVIR HYDROCHLORIDE
     Indication: HERPES SIMPLEX
  38. TIZANIDINE. [Concomitant]
     Active Substance: TIZANIDINE
     Indication: NEURALGIA
  39. DULERA [Concomitant]
     Active Substance: FORMOTEROL FUMARATE DIHYDRATE\MOMETASONE FUROATE
     Indication: CHRONIC OBSTRUCTIVE PULMONARY DISEASE
  40. FLUTICASONE. [Concomitant]
     Active Substance: FLUTICASONE
     Indication: HYPERSENSITIVITY
     Dosage: 50 ?G, BID
     Dates: start: 20150608
  41. AZITHROMYCIN ANHYDROUS. [Concomitant]
     Active Substance: AZITHROMYCIN ANHYDROUS
     Indication: INFLAMMATION
  42. AZITHROMYCIN ANHYDROUS. [Concomitant]
     Active Substance: AZITHROMYCIN ANHYDROUS
     Indication: SINUSITIS
  43. IMIPRAMINE [Concomitant]
     Active Substance: IMIPRAMINE
     Indication: POLLAKIURIA
  44. VORTIOXETINE [Suspect]
     Active Substance: VORTIOXETINE
     Indication: MAJOR DEPRESSION
     Dosage: 10 MG, QD
     Route: 048
     Dates: start: 20160914
  45. MONTELUKAST [Concomitant]
     Active Substance: MONTELUKAST SODIUM
     Indication: HYPERSENSITIVITY
  46. ALBUTEROL                          /00139501/ [Concomitant]
     Active Substance: ALBUTEROL
     Indication: ASTHMA
     Dosage: 90 ?G, UNK
     Dates: start: 19970701
  47. NITROSTAT [Concomitant]
     Active Substance: NITROGLYCERIN
     Indication: ANGINA PECTORIS
     Dosage: 0.4 MG, UNK
     Dates: start: 20140115
  48. TIZANIDINE. [Concomitant]
     Active Substance: TIZANIDINE
     Indication: FIBROMYALGIA
     Dosage: 4 MG, QD
     Route: 048
     Dates: start: 20140815
  49. ALPRAZOLAM. [Concomitant]
     Active Substance: ALPRAZOLAM
     Indication: PANIC ATTACK
  50. MONTELUKAST [Concomitant]
     Active Substance: MONTELUKAST SODIUM
     Indication: RHINITIS ALLERGIC
     Dosage: 10 MG, QD
     Route: 048
     Dates: start: 19970615
  51. NAPROXEN. [Concomitant]
     Active Substance: NAPROXEN
     Indication: OSTEOARTHRITIS
     Dosage: 220 MG, UNK
     Dates: start: 20050701
  52. VESICARE [Concomitant]
     Active Substance: SOLIFENACIN SUCCINATE
     Indication: BLADDER DISORDER
     Dosage: 10 MG, QD
     Route: 048
     Dates: start: 20080415
  53. PRAZOSIN. [Concomitant]
     Active Substance: PRAZOSIN
     Indication: NIGHTMARE
  54. TIZANIDINE. [Concomitant]
     Active Substance: TIZANIDINE
     Indication: MUSCLE SPASMS
  55. ALPRAZOLAM. [Concomitant]
     Active Substance: ALPRAZOLAM
     Indication: PANIC DISORDER
     Dosage: 0.5 MG, QD
     Route: 048
     Dates: start: 20160914
  56. ESTRADIOL. [Concomitant]
     Active Substance: ESTRADIOL
     Indication: ATROPHIC VULVOVAGINITIS
  57. IMIPRAMINE [Concomitant]
     Active Substance: IMIPRAMINE
     Indication: URINARY INCONTINENCE
     Dosage: 25 MG, QD
     Route: 048
     Dates: start: 20170318

REACTIONS (1)
  - Sexual dysfunction [Unknown]
